FAERS Safety Report 24229267 (Version 1)
Quarter: 2024Q3

REPORT INFORMATION
  Report Type: Report from Study
  Country: CL (occurrence: CL)
  Receive Date: 20240820
  Receipt Date: 20240820
  Transmission Date: 20241016
  Serious: Yes (Hospitalization, Other)
  Sender: JOHNSON AND JOHNSON
  Company Number: CL-JNJFOC-20231113610

PATIENT
  Age: 62 Year
  Sex: Female

DRUGS (1)
  1. SIMPONI [Suspect]
     Active Substance: GOLIMUMAB
     Indication: Rheumatoid arthritis
     Dosage: LAST DRUG APPLICATION: 28-OCT-2023?V4: LAST DRUG APPLICATION WAS ON 07-JUL-2024
     Route: 058
     Dates: start: 20210916

REACTIONS (7)
  - Intervertebral disc protrusion [Recovering/Resolving]
  - Lumbar spinal stenosis [Recovering/Resolving]
  - Device dislocation [Recovering/Resolving]
  - Rheumatoid arthritis [Unknown]
  - Immune system disorder [Unknown]
  - Nasopharyngitis [Recovering/Resolving]
  - Product dose omission issue [Unknown]

NARRATIVE: CASE EVENT DATE: 20230928
